FAERS Safety Report 10955434 (Version 1)
Quarter: 2015Q1

REPORT INFORMATION
  Report Type: Spontaneous
  Country: US (occurrence: None)
  Receive Date: 20150325
  Receipt Date: 20150325
  Transmission Date: 20150721
  Serious: Yes (Death, Life-Threatening, Hospitalization, Disabling, Other)
  Sender: FDA-Public Use
  Company Number: None

PATIENT
  Age: 77 Year
  Sex: Female
  Weight: 104.33 kg

DRUGS (5)
  1. DARVON [Suspect]
     Active Substance: PROPOXYPHENE HYDROCHLORIDE
     Indication: BACK PAIN
     Dosage: 65 MG EVERY 4 HRS. OR AS NEEDED, ORAL
     Route: 048
     Dates: start: 20000204, end: 20040915
  2. DARVON [Suspect]
     Active Substance: PROPOXYPHENE HYDROCHLORIDE
     Indication: PAIN IN EXTREMITY
     Dosage: 65 MG EVERY 4 HRS. OR AS NEEDED, ORAL
     Route: 048
     Dates: start: 20000204, end: 20040915
  3. METHADONE [Suspect]
     Active Substance: METHADONE HYDROCHLORIDE
     Indication: PAIN IN EXTREMITY
     Route: 048
     Dates: start: 20020204, end: 20040915
  4. METHADONE [Suspect]
     Active Substance: METHADONE HYDROCHLORIDE
     Indication: BACK PAIN
     Route: 048
     Dates: start: 20020204, end: 20040915
  5. DARVON [Suspect]
     Active Substance: PROPOXYPHENE HYDROCHLORIDE
     Indication: SPINAL PAIN
     Dosage: 65 MG EVERY 4 HRS. OR AS NEEDED, ORAL
     Route: 048
     Dates: start: 20000204, end: 20040915

REACTIONS (5)
  - Cardio-respiratory arrest [None]
  - Cardiac disorder [None]
  - Overdose [None]
  - Presyncope [None]
  - Acute coronary syndrome [None]

NARRATIVE: CASE EVENT DATE: 20040915
